FAERS Safety Report 4964458-1 (Version None)
Quarter: 2006Q2

REPORT INFORMATION
  Report Type: 
  Country: None (occurrence: None)
  Receive Date: 20060406
  Receipt Date: 20060308
  Transmission Date: 20061013
  Serious: Yes (Other)
  Sender: FDA-Public Use
  Company Number: LV-SOLVAY-00306000803

PATIENT
  Age: 12738 Day
  Sex: Male

DRUGS (3)
  1. LINEX [Concomitant]
     Indication: IRRITABLE BOWEL SYNDROME
     Dosage: DAILY DOSE:  UNKNOWN FREQUENCY: 3 TIMES A DAY
     Route: 048
     Dates: start: 20060203
  2. CREON [Suspect]
     Indication: IRRITABLE BOWEL SYNDROME
     Dosage: DAILY DOSE: 450 MILLIGRAM(S)
     Route: 048
     Dates: start: 20060203, end: 20060206
  3. CERUCAL [Concomitant]
     Indication: IRRITABLE BOWEL SYNDROME
     Dosage: DAILY DOSE: 30 MILLIGRAM(S)
     Route: 048
     Dates: start: 20060203

REACTIONS (2)
  - ANXIETY [None]
  - PSORIASIS [None]
